FAERS Safety Report 10549720 (Version 2)
Quarter: 2014Q4

REPORT INFORMATION
  Report Type: Report from Study
  Country: US (occurrence: US)
  Receive Date: 20141028
  Receipt Date: 20141028
  Transmission Date: 20150529
  Serious: Yes (Hospitalization)
  Sender: FDA-Public Use
  Company Number: US-009507513-0901USA00287

PATIENT
  Age: 65 Year
  Sex: Male
  Weight: 79 kg

DRUGS (6)
  1. VALIUM [Suspect]
     Active Substance: DIAZEPAM
     Dosage: 5 MG, TID
     Route: 048
     Dates: start: 19950101
  2. COREG [Concomitant]
     Active Substance: CARVEDILOL
     Dosage: 50 MG, QD
     Route: 048
     Dates: start: 20080902
  3. HYDROCODONE BITARTRATE. [Suspect]
     Active Substance: HYDROCODONE BITARTRATE
     Dosage: 1 UNK, PRN
     Route: 048
     Dates: start: 19950101
  4. SIMVASTATIN. [Suspect]
     Active Substance: SIMVASTATIN
     Indication: ACUTE CORONARY SYNDROME
     Route: 048
     Dates: start: 20070405
  5. ELAVIL [Suspect]
     Active Substance: AMITRIPTYLINE HYDROCHLORIDE
     Dosage: 50 MG, HS
     Route: 048
     Dates: start: 19950101
  6. MK-0130 [Suspect]
     Active Substance: CYCLOBENZAPRINE
     Route: 048

REACTIONS (1)
  - Accidental overdose [Recovered/Resolved]

NARRATIVE: CASE EVENT DATE: 20081203
